FAERS Safety Report 13572487 (Version 1)
Quarter: 2017Q2

REPORT INFORMATION
  Report Type: Spontaneous
  Country: ES (occurrence: ES)
  Receive Date: 20170523
  Receipt Date: 20170523
  Transmission Date: 20170830
  Serious: Yes (Hospitalization)
  Sender: FDA-Public Use
  Company Number: ES-US WORLDMEDS, LLC-USW201705-000720

PATIENT
  Age: 66 Year
  Sex: Female

DRUGS (6)
  1. AMANTADINE. [Suspect]
     Active Substance: AMANTADINE HYDROCHLORIDE
     Route: 048
  2. ROPINIROLE. [Suspect]
     Active Substance: ROPINIROLE
     Indication: RESTLESS LEGS SYNDROME
     Route: 048
  3. SAFINAMIDE [Suspect]
     Active Substance: SAFINAMIDE
     Indication: RESTLESS LEGS SYNDROME
     Route: 048
     Dates: start: 2016
  4. LEVODOPA [Suspect]
     Active Substance: LEVODOPA
     Indication: RESTLESS LEGS SYNDROME
  5. LEVODOPA [Suspect]
     Active Substance: LEVODOPA
  6. CARBIDOPA. [Suspect]
     Active Substance: CARBIDOPA

REACTIONS (4)
  - Hallucination, visual [Recovered/Resolved]
  - Parkinsonism hyperpyrexia syndrome [Recovered/Resolved]
  - Dyskinesia [Recovered/Resolved]
  - Confusional state [Recovered/Resolved]

NARRATIVE: CASE EVENT DATE: 201607
